FAERS Safety Report 11620398 (Version 2)
Quarter: 2015Q4

REPORT INFORMATION
  Report Type: Report from Study
  Country: US (occurrence: US)
  Receive Date: 20151012
  Receipt Date: 20151022
  Transmission Date: 20160304
  Serious: Yes (Hospitalization)
  Sender: FDA-Public Use
  Company Number: US-VERTEX PHARMACEUTICALS-2015-004317

PATIENT
  Age: 24 Year
  Sex: Male

DRUGS (6)
  1. ORKAMBI [Suspect]
     Active Substance: IVACAFTOR\LUMACAFTOR
     Indication: CYSTIC FIBROSIS
     Dosage: UNK
     Route: 048
     Dates: start: 20150903, end: 20150924
  2. ALBUTEROL. [Concomitant]
     Active Substance: ALBUTEROL
  3. PULMOZYME [Concomitant]
     Active Substance: DORNASE ALFA
  4. AZITHROMYCIN [Concomitant]
     Active Substance: AZITHROMYCIN ANHYDROUS
  5. CREON [Concomitant]
     Active Substance: PANCRELIPASE AMYLASE\PANCRELIPASE LIPASE\PANCRELIPASE PROTEASE
  6. INSULIN [Concomitant]
     Active Substance: INSULIN NOS

REACTIONS (7)
  - Malaise [Recovered/Resolved]
  - Fatigue [Recovered/Resolved]
  - Cough [Recovered/Resolved]
  - Pulmonary function test abnormal [Recovered/Resolved]
  - Dyspnoea [Recovered/Resolved]
  - Pyrexia [Recovered/Resolved]
  - Productive cough [Recovered/Resolved]

NARRATIVE: CASE EVENT DATE: 20150915
